FAERS Safety Report 5296469-3 (Version None)
Quarter: 2007Q2

REPORT INFORMATION
  Report Type: 
  Country: None (occurrence: None)
  Receive Date: 20070413
  Receipt Date: 20070404
  Transmission Date: 20071010
  Serious: Yes (Other)
  Sender: FDA-Public Use
  Company Number: KR-SANOFI-SYNTHELABO-A01200703620

PATIENT
  Sex: Female

DRUGS (4)
  1. STILNOX [Suspect]
     Indication: INSOMNIA
     Dosage: UNK
     Route: 048
     Dates: start: 20050401, end: 20061201
  2. STILNOX [Suspect]
     Dosage: 20 MG
     Route: 048
     Dates: start: 20061201
  3. STILNOX [Suspect]
     Dosage: UP  TO 100 MG OCCASIONALLY
     Route: 048
  4. SSRI ANTIDEPRESSANT [Concomitant]
     Indication: DEPRESSION
     Dosage: UNK
     Route: 065

REACTIONS (3)
  - HEPATITIS [None]
  - INTENTIONAL OVERDOSE [None]
  - MANIA [None]
